FAERS Safety Report 8042675-4 (Version None)
Quarter: 2012Q1

REPORT INFORMATION
  Report Type: 
  Country: None (occurrence: None)
  Receive Date: 20120112
  Receipt Date: 20120105
  Transmission Date: 20120608
  Serious: Yes (Hospitalization, Disabling, Other)
  Sender: FDA-Public Use
  Company Number: US-MERCK-1107USA03463

PATIENT
  Age: 49 Year
  Sex: Female

DRUGS (13)
  1. FOSAMAX [Suspect]
     Route: 048
     Dates: start: 20060401, end: 20061201
  2. FOSAMAX PLUS D [Suspect]
     Route: 048
     Dates: start: 20060301, end: 20060401
  3. [THERAPY UNSPECIFIED] [Concomitant]
     Indication: RHEUMATOID ARTHRITIS
     Route: 065
     Dates: start: 20020301
  4. FOSAMAX [Suspect]
     Route: 048
     Dates: start: 20060401, end: 20061201
  5. FOSAMAX [Suspect]
     Route: 048
     Dates: start: 20050901, end: 20060201
  6. FOSAMAX [Suspect]
     Route: 048
     Dates: start: 20070901, end: 20080601
  7. FOSAMAX [Suspect]
     Route: 048
     Dates: start: 20070901, end: 20080601
  8. FOSAMAX [Suspect]
     Indication: OSTEOPOROSIS
     Route: 048
     Dates: start: 20020301, end: 20050601
  9. FOSAMAX PLUS D [Suspect]
     Indication: OSTEOPENIA
     Route: 048
     Dates: start: 20050701, end: 20050801
  10. FOSAMAX PLUS D [Suspect]
     Route: 048
     Dates: start: 20070101, end: 20070801
  11. FOSAMAX [Suspect]
     Route: 048
     Dates: start: 20050901, end: 20060201
  12. FOSAMAX [Suspect]
     Indication: OSTEOPENIA
     Route: 048
     Dates: start: 20020301, end: 20050601
  13. CORTICOSTEROIDS (UNSPECIFIED) [Concomitant]
     Route: 065
     Dates: start: 20020101, end: 20080201

REACTIONS (20)
  - FIBROMYALGIA [None]
  - LOW TURNOVER OSTEOPATHY [None]
  - HYPERTENSION [None]
  - FEMUR FRACTURE [None]
  - BACTERIAL INFECTION [None]
  - MIGRAINE [None]
  - FOLATE DEFICIENCY [None]
  - MULTIPLE FRACTURES [None]
  - HYPERSENSITIVITY [None]
  - ASTHMA [None]
  - TENSION HEADACHE [None]
  - NERVOUS SYSTEM DISORDER [None]
  - FOOT FRACTURE [None]
  - DEPRESSION [None]
  - INSOMNIA [None]
  - PSORIASIS [None]
  - FRACTURE NONUNION [None]
  - PAIN [None]
  - OSTEOPOROSIS [None]
  - NARCOLEPSY [None]
